FAERS Safety Report 15768639 (Version 5)
Quarter: 2019Q2

REPORT INFORMATION
  Report Type: Spontaneous
  Country: JP (occurrence: JP)
  Receive Date: 20181228
  Receipt Date: 20190524
  Transmission Date: 20190711
  Serious: Yes (Hospitalization)
  Sender: FDA-Public Use
  Company Number: JP-AMGEN-JPNSP2018114368

PATIENT
  Age: 54 Year
  Sex: Female
  Weight: 46.8 kg

DRUGS (14)
  1. CALCIUM LEVOFOLINATE [Concomitant]
     Active Substance: LEVOLEUCOVORIN CALCIUM
     Indication: METASTASES TO LUNG
     Dosage: 270 MILLIGRAM, Q2WEEKS
     Route: 041
     Dates: start: 20140409, end: 20141113
  2. 5-FU [FLUOROURACIL] [Concomitant]
     Active Substance: FLUOROURACIL
     Indication: METASTASES TO LUNG
     Dosage: 3200 MILLIGRAM, Q2WK
     Route: 041
     Dates: start: 20140409, end: 20141113
  3. 5-FU [FLUOROURACIL] [Concomitant]
     Active Substance: FLUOROURACIL
     Dosage: UNK
     Route: 040
     Dates: start: 20150128
  4. 5-FU [FLUOROURACIL] [Concomitant]
     Active Substance: FLUOROURACIL
     Dosage: UNK
     Route: 041
     Dates: start: 20150128
  5. CALCIUM LEVOFOLINATE [Concomitant]
     Active Substance: LEVOLEUCOVORIN CALCIUM
     Indication: RECTAL CANCER
     Dosage: UNK
     Route: 041
     Dates: start: 20150128
  6. ACINON [NIZATIDINE] [Concomitant]
     Dosage: 150 MILLIGRAM, BID
     Route: 048
     Dates: start: 20131127
  7. EMEND [Concomitant]
     Active Substance: APREPITANT
     Dosage: 205 MILLIGRAM, QD
     Route: 048
     Dates: start: 20140522
  8. MAGLAX [MAGNESIUM OXIDE] [Concomitant]
     Dosage: 250 MILLIGRAM, TID
     Route: 048
     Dates: start: 20131127
  9. IRINOTECAN HYDROCHLORIDE. [Concomitant]
     Active Substance: IRINOTECAN HYDROCHLORIDE
     Indication: RECTAL CANCER
     Dosage: 190 MILLIGRAM, Q2WEEKS
     Route: 041
     Dates: start: 20140409, end: 20141113
  10. 5-FU [FLUOROURACIL] [Concomitant]
     Active Substance: FLUOROURACIL
     Indication: RECTAL CANCER
     Dosage: 540 MILLIGRAM, Q2WK
     Route: 040
     Dates: start: 20140409, end: 20141113
  11. CEPHARANTHINE [Concomitant]
     Active Substance: CEPHARANTHINE
     Dosage: 2 MILLIGRAM, TID
     Route: 048
     Dates: start: 20140522
  12. VECTIBIX [Suspect]
     Active Substance: PANITUMUMAB
     Indication: RECTAL CANCER
     Dosage: 250 MILLIGRAM, Q2WK
     Route: 041
     Dates: start: 20140423, end: 20141113
  13. URSO [Concomitant]
     Active Substance: URSODIOL
     Dosage: 50 MILLIGRAM, TID
     Route: 048
     Dates: start: 20131127
  14. IRINOTECAN HYDROCHLORIDE. [Concomitant]
     Active Substance: IRINOTECAN HYDROCHLORIDE
     Indication: METASTASES TO LUNG
     Dosage: UNK
     Route: 041
     Dates: start: 20150128

REACTIONS (6)
  - Dermatitis acneiform [Recovered/Resolved]
  - Bacterial infection [Recovering/Resolving]
  - Skin exfoliation [Recovered/Resolved]
  - Purpura [Recovering/Resolving]
  - Paronychia [Recovered/Resolved]
  - Hypersensitivity vasculitis [Recovering/Resolving]

NARRATIVE: CASE EVENT DATE: 20140604
